FAERS Safety Report 16785710 (Version 1)
Quarter: 2019Q3

REPORT INFORMATION
  Report Type: Spontaneous
  Country: US (occurrence: US)
  Receive Date: 20190909
  Receipt Date: 20190909
  Transmission Date: 20191005
  Serious: No
  Sender: FDA-Public Use
  Company Number: US-PFIZER INC-2019384519

PATIENT
  Age: 12 Year
  Sex: Male

DRUGS (1)
  1. DOXYCYCLINE HYCLATE. [Suspect]
     Active Substance: DOXYCYCLINE HYCLATE
     Dosage: UNK
     Dates: start: 201907, end: 201908

REACTIONS (3)
  - Nail pigmentation [Unknown]
  - Photosensitivity reaction [Unknown]
  - Onychomadesis [Unknown]

NARRATIVE: CASE EVENT DATE: 2019
